FAERS Safety Report 4599235-7 (Version None)
Quarter: 2005Q1

REPORT INFORMATION
  Report Type: 
  Country: None (occurrence: None)
  Receive Date: 20050302
  Receipt Date: 20050302
  Transmission Date: 20050727
  Serious: Yes (Other)
  Sender: FDA-Public Use
  Company Number: None

PATIENT
  Sex: Female
  Weight: 80.2867 kg

DRUGS (1)
  1. PRILOSEC OTC [Suspect]
     Dosage: ORAL X 1 ONCE DAILY
     Route: 048

REACTIONS (2)
  - ABDOMINAL DISCOMFORT [None]
  - DIARRHOEA [None]
